FAERS Safety Report 6281281-9 (Version None)
Quarter: 2009Q3

REPORT INFORMATION
  Report Type: 
  Country: None (occurrence: None)
  Receive Date: 20090724
  Receipt Date: 20090415
  Transmission Date: 20100115
  Serious: Yes (Other)
  Sender: FDA-Public Use
  Company Number: A0778934A

PATIENT
  Age: 58 Year
  Sex: Male

DRUGS (11)
  1. AVANDIA [Suspect]
     Dosage: 8MG PER DAY
     Route: 048
     Dates: start: 20050101, end: 20080901
  2. PLAVIX [Concomitant]
  3. COREG [Concomitant]
  4. ZANTAC [Concomitant]
  5. PROTONIX [Concomitant]
  6. BLOOD PRESSURE MEDICATION [Concomitant]
  7. GLUCOPHAGE [Concomitant]
  8. GLIPIZIDE [Concomitant]
  9. ELAVIL [Concomitant]
  10. NEURONTIN [Concomitant]
  11. ASPIRIN [Concomitant]

REACTIONS (4)
  - CARDIAC FAILURE CONGESTIVE [None]
  - DYSPNOEA [None]
  - OEDEMA PERIPHERAL [None]
  - WEIGHT INCREASED [None]
